FAERS Safety Report 8812881 (Version 3)
Quarter: 2012Q4

REPORT INFORMATION
  Report Type: Report from Study
  Country: CA (occurrence: CA)
  Receive Date: 20120927
  Receipt Date: 20121204
  Transmission Date: 20130627
  Serious: Yes (Other)
  Sender: FDA-Public Use
  Company Number: CA-ROCHE-1135155

PATIENT
  Sex: Female
  Weight: 113.05 kg

DRUGS (6)
  1. RITUXIMAB [Suspect]
     Indication: IDIOPATHIC THROMBOCYTOPENIC PURPURA
     Route: 042
     Dates: start: 20120907
  2. AMITRIPTYLINE [Concomitant]
  3. VALPROIC ACID [Concomitant]
  4. BACLOFEN [Concomitant]
  5. RAMIPRIL [Concomitant]
  6. METFORMIN [Concomitant]

REACTIONS (8)
  - Self-injurious ideation [Recovering/Resolving]
  - Blood glucose abnormal [Unknown]
  - Depressed mood [Unknown]
  - Fatigue [Not Recovered/Not Resolved]
  - Depression [Not Recovered/Not Resolved]
  - Insomnia [Recovering/Resolving]
  - Decreased appetite [Not Recovered/Not Resolved]
  - Infection [Not Recovered/Not Resolved]
